FAERS Safety Report 6934021-1 (Version None)
Quarter: 2010Q3

REPORT INFORMATION
  Report Type: 
  Country: None (occurrence: None)
  Receive Date: 20100820
  Receipt Date: 20100810
  Transmission Date: 20110219
  Serious: Yes (Other)
  Sender: FDA-Public Use
  Company Number: US-PFIZER INC-2010101229

PATIENT
  Sex: Female
  Weight: 53.52 kg

DRUGS (7)
  1. NEURONTIN [Suspect]
     Indication: FIBROMYALGIA
     Dosage: 300 MG, 3X/DAY
     Route: 048
     Dates: start: 20090901, end: 20100101
  2. LYRICA [Suspect]
     Indication: FIBROMYALGIA
     Dosage: 150 MG, 2X/DAY
     Route: 048
     Dates: start: 20091201, end: 20100601
  3. FLOVENT [Concomitant]
     Indication: CHRONIC OBSTRUCTIVE PULMONARY DISEASE
     Dosage: UNK
  4. ATROVENT [Concomitant]
     Indication: CHRONIC OBSTRUCTIVE PULMONARY DISEASE
     Dosage: UNK
  5. TIZANIDINE [Concomitant]
     Indication: MUSCLE RELAXANT THERAPY
     Dosage: 8 MG, 3X/DAY
  6. ACETAMINOPHEN [Concomitant]
     Indication: MUSCLE RELAXANT THERAPY
     Dosage: UNK
  7. PROMETHAZINE [Concomitant]
     Indication: HYPERSENSITIVITY
     Dosage: UNK

REACTIONS (6)
  - AGGRESSION [None]
  - GAIT DISTURBANCE [None]
  - IMPULSE-CONTROL DISORDER [None]
  - MOOD ALTERED [None]
  - PERSONALITY CHANGE [None]
  - PHOTOPSIA [None]
